FAERS Safety Report 6999539-4 (Version None)
Quarter: 2010Q3

REPORT INFORMATION
  Report Type: 
  Country: None (occurrence: None)
  Receive Date: 20100920
  Receipt Date: 20100525
  Transmission Date: 20110219
  Serious: No
  Sender: FDA-Public Use
  Company Number: US-ASTRAZENECA-2010SE23953

PATIENT
  Sex: Female
  Weight: 54.4 kg

DRUGS (5)
  1. SEROQUEL [Suspect]
     Indication: SOMNOLENCE
     Route: 048
     Dates: start: 20100201, end: 20100201
  2. SEROQUEL [Suspect]
     Route: 048
     Dates: start: 20100401, end: 20100401
  3. SEROQUEL [Suspect]
     Route: 048
     Dates: start: 20100401
  4. SEROQUEL [Suspect]
     Route: 048
  5. SEROQUEL [Suspect]
     Route: 048

REACTIONS (2)
  - PRE-EXISTING CONDITION IMPROVED [None]
  - THERAPEUTIC RESPONSE UNEXPECTED [None]
